FAERS Safety Report 5320423-6 (Version None)
Quarter: 2007Q2

REPORT INFORMATION
  Report Type: 
  Country: None (occurrence: None)
  Receive Date: 20070509
  Receipt Date: 20070430
  Transmission Date: 20071010
  Serious: Yes (Death, Other)
  Sender: FDA-Public Use
  Company Number: A0649767A

PATIENT
  Age: 59 Year
  Sex: Male
  Weight: 106 kg

DRUGS (10)
  1. TOSITUMOMAB [Suspect]
     Indication: NON-HODGKIN'S LYMPHOMA
     Dosage: 450MG SINGLE DOSE
     Route: 042
     Dates: start: 19980819, end: 19980819
  2. IODINE I 131 TOSITUMOMAB [Suspect]
     Indication: NON-HODGKIN'S LYMPHOMA
     Dosage: 5MCI SINGLE DOSE
     Route: 042
     Dates: start: 19980819, end: 19980819
  3. TOSITUMOMAB [Suspect]
     Dosage: 450MG SINGLE DOSE
     Route: 042
     Dates: start: 19980827, end: 19980827
  4. IODINE I 131 TOSITUMOMAB [Suspect]
     Dosage: 108.74MCI SINGLE DOSE
     Route: 042
     Dates: start: 19980827, end: 19980827
  5. DIGOXIN [Concomitant]
  6. SATOLOL [Concomitant]
  7. ACYCLOVIR [Concomitant]
  8. METOPROLOL SUCCINATE [Concomitant]
  9. ALLOPURINOL [Concomitant]
  10. CEFEPIME [Concomitant]

REACTIONS (3)
  - DIFFUSE LARGE B-CELL LYMPHOMA [None]
  - LYMPHOMA [None]
  - MYELODYSPLASTIC SYNDROME [None]
